FAERS Safety Report 9017178 (Version 1)
Quarter: 2013Q1

REPORT INFORMATION
  Report Type: Spontaneous
  Country: US (occurrence: US)
  Receive Date: 20130117
  Receipt Date: 20130117
  Transmission Date: 20140127
  Serious: Yes (Death)
  Sender: FDA-Public Use
  Company Number: US-BAYER-2013-003319

PATIENT
  Age: 42 Year
  Sex: Female
  Weight: 124.72 kg

DRUGS (27)
  1. YAZ [Suspect]
  2. YASMIN [Suspect]
  3. OCELLA [Suspect]
  4. OMEPRAZOLE [Concomitant]
     Dosage: UNK
  5. LISINOPRIL [Concomitant]
     Dosage: 12.5 MG, UNK
  6. LISINOPRIL [Concomitant]
     Dosage: 20 MG, UNK
  7. MIDAZOLAM [Concomitant]
     Dosage: 2 MG, UNK
     Route: 042
  8. REGLAN [Concomitant]
     Dosage: 10 MG, UNK
     Route: 042
  9. PEPCID [Concomitant]
     Dosage: 20 MG, UNK
  10. ONDANSETRON [Concomitant]
     Dosage: 4 MG, UNK
     Route: 042
  11. CIPRO [Concomitant]
     Dosage: 400 MG, UNK
     Route: 042
  12. CIPROFLOXACIN [Concomitant]
     Dosage: 500 MG, BID
     Route: 048
  13. FENTANYL [Concomitant]
     Dosage: 100 ?G, UNK
  14. FENTANYL [Concomitant]
     Dosage: 200 MCG/24HR, UNK
     Route: 042
  15. PROPOFOL [Concomitant]
     Dosage: 200 MG, UNK
     Route: 042
  16. ZESTORETIC [Concomitant]
     Dosage: 12.5 MG, UNK
  17. HYDROCODONE/ACETAMINOPHEN [Concomitant]
     Indication: PAIN
     Dosage: 5/500,EVERY SIX HOUR
  18. PYRIDIUM [Concomitant]
     Indication: DYSURIA
     Dosage: 200 MG, TID
  19. MULTIVITAMIN AND MINERAL [Concomitant]
     Dosage: AS DIRECTED
  20. UROCIT-K [Concomitant]
     Dosage: 1 DF, UNK
     Route: 048
  21. HYDROCHLOROTHIAZIDE [Concomitant]
     Dosage: 12.5 MG, UNK
     Route: 048
  22. GENTAMYCIN [Concomitant]
     Dosage: 80 MG, UNK
     Route: 042
  23. CLINDAMYCIN [Concomitant]
     Dosage: 600 MG, UNK
     Route: 042
  24. LASIX [Concomitant]
     Dosage: 20 MG, UNK
     Route: 042
  25. MORPHINE [Concomitant]
     Dosage: 5 MG, UNK
     Route: 042
  26. LEVOFLOXACIN [Concomitant]
     Dosage: 500 MG, DAILY
     Route: 048
  27. LORTAB [Concomitant]
     Dosage: 10/500, EVERY 6 HOURS

REACTIONS (2)
  - Pulmonary embolism [Fatal]
  - Deep vein thrombosis [Fatal]
